FAERS Safety Report 12594443 (Version 1)
Quarter: 2016Q3

REPORT INFORMATION
  Report Type: Spontaneous
  Country: GB (occurrence: GB)
  Receive Date: 20160726
  Receipt Date: 20160726
  Transmission Date: 20161109
  Serious: Yes (Other)
  Sender: FDA-Public Use
  Company Number: GB-TEVA-677627ACC

PATIENT
  Age: 16 Year
  Sex: Female
  Weight: 43.08 kg

DRUGS (1)
  1. HALOPERIDOL. [Suspect]
     Active Substance: HALOPERIDOL
     Indication: PSYCHOTIC DISORDER
     Route: 048
     Dates: start: 20160628, end: 20160628

REACTIONS (5)
  - Pharyngeal disorder [Recovered/Resolved]
  - Obstructive airways disorder [Recovered/Resolved]
  - Extrapyramidal disorder [Recovered/Resolved]
  - Muscle spasms [Recovered/Resolved]
  - Oculogyric crisis [Recovered/Resolved]

NARRATIVE: CASE EVENT DATE: 20160628
